FAERS Safety Report 8977887 (Version 4)
Quarter: 2013Q1

REPORT INFORMATION
  Report Type: Spontaneous
  Country: DK (occurrence: DK)
  Receive Date: 20121220
  Receipt Date: 20130307
  Transmission Date: 20140127
  Serious: Yes (Disabling, Other)
  Sender: FDA-Public Use
  Company Number: PHHY2012DK115699

PATIENT
  Age: 68 Year
  Sex: Female
  Weight: 63 kg

DRUGS (6)
  1. ACLASTA [Suspect]
     Indication: OSTEOPOROSIS
     Dosage: 5 MG/YEAR
     Route: 042
     Dates: start: 20120823
  2. ALENDRONAT [Concomitant]
     Indication: OSTEOPOROSIS
     Dosage: 70 MG,1/WEEK
     Route: 048
     Dates: start: 20120321, end: 20120810
  3. SIMVASTATIN [Concomitant]
     Indication: BLOOD CHOLESTEROL INCREASED
     Dosage: 20 MG /DAY
     Route: 048
     Dates: start: 20111210
  4. CLOPIDOGREL [Concomitant]
     Indication: TRANSIENT ISCHAEMIC ATTACK
     Dosage: 75 MG/ DAY
     Route: 048
     Dates: start: 20111215
  5. AMLODIPIN [Concomitant]
     Indication: HYPERTENSION
     Dosage: 5 MG/ DAY
     Route: 048
     Dates: start: 20110320
  6. OMEPRAZOLE [Concomitant]
     Indication: ABDOMINAL DISCOMFORT
     Dosage: 20 MG, UNK
     Route: 048
     Dates: start: 20120310

REACTIONS (4)
  - Pathological fracture [Unknown]
  - Pain in extremity [Unknown]
  - Bone pain [Unknown]
  - Alopecia [Unknown]
